FAERS Safety Report 8294906-3 (Version None)
Quarter: 2012Q2

REPORT INFORMATION
  Report Type: 
  Country: None (occurrence: None)
  Receive Date: 20120418
  Receipt Date: 20120415
  Transmission Date: 20120825
  Serious: No
  Sender: FDA-Public Use
  Company Number: US-TEVA-333658USA

PATIENT
  Sex: Female
  Weight: 72.186 kg

DRUGS (2)
  1. LEVOTHYROXINE SODIUM [Concomitant]
     Indication: HYPOTHYROIDISM
     Dosage: 75 MICROGRAM;
     Route: 048
     Dates: start: 20111101
  2. PLAN B ONE-STEP [Suspect]
     Indication: POST COITAL CONTRACEPTION
     Dosage: 1.5 MILLIGRAM;
     Route: 048
     Dates: start: 20120415, end: 20120415

REACTIONS (2)
  - PELVIC PAIN [None]
  - MENSTRUATION IRREGULAR [None]
